FAERS Safety Report 18046465 (Version 1)
Quarter: 2020Q3

REPORT INFORMATION
  Report Type: Spontaneous
  Country: US (occurrence: US)
  Receive Date: 20200721
  Receipt Date: 20200721
  Transmission Date: 20201104
  Serious: Yes (Hospitalization, Other)
  Sender: FDA-Public Use
  Company Number: US-ADVANZ PHARMA-202007007240

PATIENT

DRUGS (3)
  1. LENZILUMAB. [Suspect]
     Active Substance: LENZILUMAB
     Indication: COVID-19 PNEUMONIA
     Dosage: 600 MG (TOTAL OF 3 DOSES)
     Route: 042
  2. HYDROXYCHLOROQUINE [Suspect]
     Active Substance: HYDROXYCHLOROQUINE
     Indication: PRODUCT USE IN UNAPPROVED INDICATION
     Dosage: 200 MG, BID
     Route: 048
  3. HYDROXYCHLOROQUINE [Suspect]
     Active Substance: HYDROXYCHLOROQUINE
     Indication: COVID-19 PNEUMONIA
     Dosage: 400 MG (FOR 2 DOSES)
     Route: 048

REACTIONS (8)
  - Condition aggravated [Recovering/Resolving]
  - Pyrexia [Recovering/Resolving]
  - Respiratory failure [Recovering/Resolving]
  - Hypoxia [Recovering/Resolving]
  - COVID-19 pneumonia [Recovering/Resolving]
  - Thrombocytosis [Recovering/Resolving]
  - Cytokine storm [Recovering/Resolving]
  - Off label use [Unknown]
